FAERS Safety Report 8913777 (Version 3)
Quarter: 2013Q1

REPORT INFORMATION
  Report Type: Spontaneous
  Country: JP (occurrence: JP)
  Receive Date: 20121119
  Receipt Date: 20130122
  Transmission Date: 20140127
  Serious: Yes (Hospitalization)
  Sender: FDA-Public Use
  Company Number: JP-ABBOTT-12P-087-1008371-00

PATIENT
  Age: 59 Year
  Sex: Male

DRUGS (27)
  1. CLARITH TAB 200 MG [Suspect]
     Indication: MYCOBACTERIUM AVIUM COMPLEX INFECTION
     Route: 048
     Dates: start: 20121031, end: 20121114
  2. CLARITH TAB 200 MG [Suspect]
     Indication: BRONCHOPULMONARY ASPERGILLOSIS
  3. CLARITH TAB 200 MG [Suspect]
     Indication: PNEUMONIA
  4. EBUTOL [Suspect]
     Indication: MYCOBACTERIUM AVIUM COMPLEX INFECTION
     Route: 048
     Dates: start: 20121031, end: 20121114
  5. EBUTOL [Suspect]
     Indication: PNEUMONIA
  6. EBUTOL [Suspect]
     Indication: BRONCHOPULMONARY ASPERGILLOSIS
  7. RIFADIN [Suspect]
     Indication: MYCOBACTERIUM AVIUM COMPLEX INFECTION
     Route: 048
     Dates: start: 20121031, end: 20121102
  8. RIFADIN [Suspect]
     Indication: PNEUMONIA
  9. RIFADIN [Suspect]
     Indication: BRONCHOPULMONARY ASPERGILLOSIS
  10. MEROPEN [Suspect]
     Indication: MYCOBACTERIUM AVIUM COMPLEX INFECTION
     Route: 042
     Dates: start: 20121020, end: 20121102
  11. MEROPEN [Suspect]
     Indication: PNEUMONIA
  12. MEROPEN [Suspect]
     Indication: BRONCHOPULMONARY ASPERGILLOSIS
  13. CRAVIT [Suspect]
     Indication: MYCOBACTERIUM AVIUM COMPLEX INFECTION
     Route: 042
  14. CRAVIT [Suspect]
     Indication: PNEUMONIA
  15. CRAVIT [Suspect]
     Indication: BRONCHOPULMONARY ASPERGILLOSIS
  16. LANSOPRAZOLE [Suspect]
     Indication: GASTRIC ULCER
     Route: 048
     Dates: start: 20121023, end: 20121109
  17. LIPITOR [Suspect]
     Indication: HYPERLIPIDAEMIA
     Route: 048
     Dates: start: 20121023, end: 20121109
  18. AMBISOME [Suspect]
     Indication: MYCOBACTERIUM AVIUM COMPLEX INFECTION
     Route: 042
     Dates: start: 20121104, end: 20121108
  19. AMBISOME [Suspect]
     Indication: PNEUMONIA
  20. AMBISOME [Suspect]
     Indication: BRONCHOPULMONARY ASPERGILLOSIS
  21. ISCOTIN [Suspect]
     Indication: MYCOBACTERIUM AVIUM COMPLEX INFECTION
     Route: 042
     Dates: start: 20121021, end: 20121021
  22. ISCOTIN [Suspect]
     Indication: PNEUMONIA
  23. ISCOTIN [Suspect]
     Indication: BRONCHOPULMONARY ASPERGILLOSIS
  24. AMIKACIN [Suspect]
     Indication: MYCOBACTERIUM AVIUM COMPLEX INFECTION
     Route: 042
     Dates: start: 20121031, end: 20121102
  25. AMIKACIN [Suspect]
     Indication: PNEUMONIA
  26. AMIKACIN [Suspect]
     Indication: BRONCHOPULMONARY ASPERGILLOSIS
  27. MICAFUNGIN SODIUM [Suspect]
     Indication: PULMONARY TUBERCULOSIS
     Route: 042
     Dates: start: 20121020, end: 20121103

REACTIONS (1)
  - Interstitial lung disease [Recovering/Resolving]
